FAERS Safety Report 7004096-2 (Version None)
Quarter: 2010Q3

REPORT INFORMATION
  Report Type: 
  Country: None (occurrence: None)
  Receive Date: 20100920
  Receipt Date: 20100204
  Transmission Date: 20110219
  Serious: No
  Sender: FDA-Public Use
  Company Number: US-WYE-H13481310

PATIENT
  Sex: Female
  Weight: 54.48 kg

DRUGS (3)
  1. PRISTIQ [Suspect]
     Indication: DEPRESSION
     Route: 048
     Dates: start: 20100122
  2. AMFETAMINE ASPARTATE/AMFETAMINE SULFATE/DEXAMFETAMINE SACCHARATE/DEXAM [Concomitant]
  3. SODIUM OXYBATE [Concomitant]

REACTIONS (5)
  - APATHY [None]
  - DIARRHOEA [None]
  - DRUG EFFECT DECREASED [None]
  - IRRITABILITY [None]
  - MEDICATION RESIDUE [None]
